FAERS Safety Report 13499040 (Version 1)
Quarter: 2017Q2

REPORT INFORMATION
  Report Type: Spontaneous
  Country: US (occurrence: US)
  Receive Date: 20170430
  Receipt Date: 20170430
  Transmission Date: 20170830
  Serious: No
  Sender: FDA-Public Use
  Company Number: None

PATIENT
  Age: 26 Year
  Sex: Male

DRUGS (3)
  1. PSYCH MEDS [Concomitant]
  2. PROAIR HFA [Suspect]
     Active Substance: ALBUTEROL SULFATE
  3. SYMBICORT [Suspect]
     Active Substance: BUDESONIDE\FORMOTEROL FUMARATE DIHYDRATE
     Indication: ASTHMA

REACTIONS (3)
  - Product label confusion [None]
  - Product colour issue [None]
  - Product packaging confusion [None]

NARRATIVE: CASE EVENT DATE: 20170426
